FAERS Safety Report 7707362-8 (Version None)
Quarter: 2011Q3

REPORT INFORMATION
  Report Type: 
  Country: None (occurrence: None)
  Receive Date: 20110824
  Receipt Date: 20110818
  Transmission Date: 20111222
  Serious: Yes (Hospitalization, Other)
  Sender: FDA-Public Use
  Company Number: US-PFIZER INC-2011158667

PATIENT
  Sex: Female
  Weight: 62.132 kg

DRUGS (3)
  1. AZITHROMYCIN [Suspect]
     Indication: GASTRIC DISORDER
     Dosage: UNK
     Dates: start: 19950101, end: 20110601
  2. PROTONIX [Concomitant]
     Dosage: UNK
  3. ERYTHROMYCIN [Concomitant]
     Indication: GASTRIC DISORDER

REACTIONS (2)
  - VOMITING [None]
  - HIP ARTHROPLASTY [None]
